FAERS Safety Report 9197363 (Version 1)
Quarter: 2013Q1

REPORT INFORMATION
  Report Type: Spontaneous
  Country: US (occurrence: None)
  Receive Date: 20120709
  Receipt Date: 20120709
  Transmission Date: 20140127
  Serious: No
  Sender: FDA-Public Use
  Company Number: 2012HGS-003522

PATIENT
  Sex: Female
  Weight: 41.28 kg

DRUGS (8)
  1. BENLYSTA [Suspect]
     Indication: SYSTEMIC LUPUS ERYTHEMATOSUS
     Dosage: 1 IN 28 D
     Route: 041
     Dates: start: 201109
  2. LEVOTHYROXINE (LEVOTHYROXINE) (LEVOTHYROXINE) [Concomitant]
  3. PREDNISONE (PREDNISONE) (PREDNISONE) [Concomitant]
  4. BABY ASPIRIN (ACEETYLSALICYLIC ACID) (ACETYLSALICYLIC ACID) [Concomitant]
  5. CALCIUM (CALCIUM GLUCONATE) (CALCIUM GLUCONATE) [Concomitant]
  6. AMBIEN (ZOLPIDEM TARTRATE) (ZOLPIDEM TARTRATE) [Concomitant]
  7. TUMS (TUMS) [Concomitant]
  8. TYLENOL (TYLENOL PM, EXTRA STRENGTH) (DIPHENHYDRAMINE, PARACETAMOL) [Concomitant]

REACTIONS (4)
  - Erythema [None]
  - Feeling hot [None]
  - Dyspnoea [None]
  - Cough [None]
